FAERS Safety Report 18889474 (Version 1)
Quarter: 2021Q1

REPORT INFORMATION
  Report Type: Other
  Country: US (occurrence: US)
  Receive Date: 20210213
  Receipt Date: 20210213
  Transmission Date: 20210420
  Serious: Yes (Other)
  Sender: FDA-Public Use
  Company Number: US-ROCHE-2768902

PATIENT
  Sex: Female

DRUGS (1)
  1. OCREVUS [Suspect]
     Active Substance: OCRELIZUMAB
     Indication: RELAPSING-REMITTING MULTIPLE SCLEROSIS
     Dosage: 300 MG ONCE IN 2 WEEKS THEN 600 MG ONCE IN 6 MONTHS?ON 08/AUG/2020, RECEIVED OCRELIZUMAB OF AN UNKNO
     Route: 042
     Dates: start: 20200730

REACTIONS (1)
  - Urinary tract infection [Unknown]
